FAERS Safety Report 4295133-7 (Version None)
Quarter: 2004Q1

REPORT INFORMATION
  Report Type: 
  Country: None (occurrence: None)
  Receive Date: 20040216
  Receipt Date: 20040203
  Transmission Date: 20041129
  Serious: Yes (Hospitalization)
  Sender: FDA-Public Use
  Company Number: FR-GLAXOSMITHKLINE-B0321939A

PATIENT
  Age: 73 Year
  Sex: Male

DRUGS (5)
  1. ZOPHREN [Suspect]
     Indication: PROPHYLAXIS OF NAUSEA AND VOMITING
     Dosage: 2UNIT PER DAY
     Route: 042
     Dates: start: 20031114, end: 20031114
  2. PLITICAN [Suspect]
     Indication: PROPHYLAXIS OF NAUSEA AND VOMITING
     Dosage: 2UNIT PER DAY
     Route: 042
     Dates: start: 20031114, end: 20031114
  3. CARBOLEVURE [Suspect]
     Dosage: 2UNIT PER DAY
     Route: 048
  4. GEMZAR [Suspect]
     Indication: METASTASES TO LYMPH NODES
     Dosage: 1750MG PER DAY
     Route: 042
     Dates: start: 20031114, end: 20031114
  5. DIOVENOR [Suspect]
     Dosage: 600MG PER DAY
     Route: 048

REACTIONS (7)
  - ECZEMA [None]
  - PRURIGO [None]
  - PRURITUS [None]
  - RASH ERYTHEMATOUS [None]
  - RASH PAPULAR [None]
  - SCRATCH [None]
  - TOXIC SKIN ERUPTION [None]
